FAERS Safety Report 24702968 (Version 1)
Quarter: 2024Q4

REPORT INFORMATION
  Report Type: Report from Study
  Country: US (occurrence: US)
  Receive Date: 20241205
  Receipt Date: 20241205
  Transmission Date: 20250114
  Serious: Yes (Death, Hospitalization, Other)
  Sender: TAIHO ONCOLOGY INC
  Company Number: US-TAIHOP-2024-009263

PATIENT
  Age: 62 Year
  Sex: Female
  Weight: 56.7 kg

DRUGS (1)
  1. LONSURF [Suspect]
     Active Substance: TIPIRACIL HYDROCHLORIDE\TRIFLURIDINE
     Indication: Rectal cancer
     Dosage: CYCLE 1
     Route: 048
     Dates: start: 20240925

REACTIONS (4)
  - Disease progression [Fatal]
  - Haematemesis [Unknown]
  - Dehydration [Unknown]
  - Bladder irritation [Unknown]
